FAERS Safety Report 8255068-1 (Version None)
Quarter: 2012Q2

REPORT INFORMATION
  Report Type: 
  Country: None (occurrence: None)
  Receive Date: 20120403
  Receipt Date: 20120302
  Transmission Date: 20120825
  Serious: Yes (Death, Hospitalization)
  Sender: FDA-Public Use
  Company Number: US-ELI_LILLY_AND_COMPANY-US201111001217

PATIENT
  Sex: Female
  Weight: 65.76 kg

DRUGS (1)
  1. ADCIRCA [Suspect]
     Dosage: UNK

REACTIONS (2)
  - DEATH [None]
  - PNEUMONIA [None]
